FAERS Safety Report 23065757 (Version 2)
Quarter: 2023Q4

REPORT INFORMATION
  Report Type: Spontaneous
  Country: CA (occurrence: CA)
  Receive Date: 20231014
  Receipt Date: 20231107
  Transmission Date: 20240110
  Serious: Yes (Hospitalization, Other)
  Sender: FDA-Public Use
  Company Number: CA-CELLTRION INC.-2023CA012196

PATIENT

DRUGS (10)
  1. INFLECTRA [Suspect]
     Active Substance: INFLIXIMAB-DYYB
     Indication: Colitis ulcerative
     Dosage: 1 DF, INDUCTION W0 HOSPITAL START, DOSE UNKNOWN
     Route: 042
     Dates: start: 20230606, end: 20230606
  2. INFLECTRA [Suspect]
     Active Substance: INFLIXIMAB-DYYB
     Dosage: 1 DF, INDUCTION W1,5 AT 10MG/KG THEN MAINTENANCE 5MG/KG AT EVERY 8 WEEKS
     Route: 042
     Dates: start: 20230612
  3. INFLECTRA [Suspect]
     Active Substance: INFLIXIMAB-DYYB
     Dosage: 1 DF, INDUCTION W1,5 AT 10MG/KG THEN MAINTENANCE 5MG/KG AT EVERY 8 WEEKS
     Route: 042
     Dates: start: 20230711
  4. INFLECTRA [Suspect]
     Active Substance: INFLIXIMAB-DYYB
     Dosage: 5 MG/KG (420 MG), EVERY 4 WEEKS (AFTER 9 WEEKS)
     Route: 042
     Dates: start: 20230912, end: 20230912
  5. INFLECTRA [Suspect]
     Active Substance: INFLIXIMAB-DYYB
     Dosage: 10 MG/KG (850 MG), EVERY 4 WEEK (3 WEEKS AND 1 DAY)
     Route: 042
     Dates: start: 20231004
  6. INFLECTRA [Suspect]
     Active Substance: INFLIXIMAB-DYYB
     Dosage: 10 MG/KG (850 MG), EVERY 4 WEEK (3 WEEKS AND 1 DAY)
     Route: 042
     Dates: start: 20231004
  7. CORTISONE [Concomitant]
     Active Substance: CORTISONE
     Indication: Colitis ulcerative
     Dosage: UNK
  8. PREDNISONE [Concomitant]
     Active Substance: PREDNISONE
     Dosage: UNK
     Route: 048
  9. PREDNISONE [Concomitant]
     Active Substance: PREDNISONE
     Dosage: 1 DF, DOSAGE INFO NOT AVAILABLE
     Route: 065
  10. PREDNISONE [Concomitant]
     Active Substance: PREDNISONE
     Dosage: 40 MG, 1 DF, DOSAGE INFO NOT AVAILABLE
     Route: 065
     Dates: start: 20230706, end: 202308

REACTIONS (9)
  - Condition aggravated [Not Recovered/Not Resolved]
  - Therapeutic response shortened [Unknown]
  - Drug ineffective [Unknown]
  - Off label use [Unknown]
  - Off label use [Unknown]
  - Inappropriate schedule of product administration [Unknown]
  - Arthralgia [Not Recovered/Not Resolved]
  - Joint swelling [Not Recovered/Not Resolved]
  - General physical health deterioration [Not Recovered/Not Resolved]

NARRATIVE: CASE EVENT DATE: 20230101
